FAERS Safety Report 5773463-7 (Version None)
Quarter: 2008Q2

REPORT INFORMATION
  Report Type: 
  Country: None (occurrence: None)
  Receive Date: 20080616
  Receipt Date: 20080606
  Transmission Date: 20081010
  Serious: Yes (Life-Threatening, Hospitalization, Other)
  Sender: FDA-Public Use
  Company Number: US-BAYER-200817325NA

PATIENT
  Age: 58 Year
  Sex: Male

DRUGS (3)
  1. AVELOX [Suspect]
     Indication: NASOPHARYNGITIS
     Dosage: TOTAL DAILY DOSE: 400 MG  UNIT DOSE: 400 MG
     Route: 048
     Dates: start: 20080315
  2. AVELOX [Suspect]
     Route: 048
     Dates: start: 20080201, end: 20080201
  3. EXTENDRYL-G [Concomitant]

REACTIONS (12)
  - ANAPHYLACTIC REACTION [None]
  - BLOOD PRESSURE DECREASED [None]
  - COLD SWEAT [None]
  - CYANOSIS [None]
  - DYSPNOEA [None]
  - HEART RATE DECREASED [None]
  - HYPERHIDROSIS [None]
  - MOVEMENT DISORDER [None]
  - NAUSEA [None]
  - OESOPHAGEAL DILATATION [None]
  - PALLOR [None]
  - SKIN DISCOLOURATION [None]
